FAERS Safety Report 4913806-7 (Version None)
Quarter: 2006Q1

REPORT INFORMATION
  Report Type: 
  Country: None (occurrence: None)
  Receive Date: 20060216
  Receipt Date: 20060209
  Transmission Date: 20060701
  Serious: Yes (Death, Hospitalization)
  Sender: FDA-Public Use
  Company Number: GB-AVENTIS-200610835EU

PATIENT
  Sex: Male

DRUGS (3)
  1. ENOXAPARIN SODIUM [Suspect]
  2. CLOPIDOGREL [Suspect]
  3. ASPIRIN [Concomitant]

REACTIONS (4)
  - HAEMATOMA [None]
  - IATROGENIC INJURY [None]
  - LACERATION [None]
  - WOUND SEPSIS [None]
